FAERS Safety Report 7619464-5 (Version None)
Quarter: 2011Q3

REPORT INFORMATION
  Report Type: 
  Country: None (occurrence: None)
  Receive Date: 20110719
  Receipt Date: 20110711
  Transmission Date: 20111222
  Serious: No
  Sender: FDA-Public Use
  Company Number: US-BIOGENIDEC-2011BI025743

PATIENT
  Age: 53 Year
  Sex: Female

DRUGS (1)
  1. TYSABRI [Suspect]
     Indication: MULTIPLE SCLEROSIS
     Route: 042
     Dates: start: 20110214

REACTIONS (6)
  - THINKING ABNORMAL [None]
  - FATIGUE [None]
  - CLUMSINESS [None]
  - FACIAL BONES FRACTURE [None]
  - NAUSEA [None]
  - FALL [None]
